FAERS Safety Report 7944421-9 (Version None)
Quarter: 2011Q4

REPORT INFORMATION
  Report Type: 
  Country: None (occurrence: None)
  Receive Date: 20111129
  Receipt Date: 20111121
  Transmission Date: 20120403
  Serious: No
  Sender: FDA-Public Use
  Company Number: US-BIOGENIDEC-2011BI044563

PATIENT
  Age: 56 Year
  Sex: Female

DRUGS (1)
  1. AVONEX [Suspect]
     Indication: MULTIPLE SCLEROSIS
     Route: 030
     Dates: start: 20111118

REACTIONS (5)
  - MUSCULOSKELETAL DISORDER [None]
  - LOSS OF CONTROL OF LEGS [None]
  - TREMOR [None]
  - HYPOAESTHESIA [None]
  - CHILLS [None]
